FAERS Safety Report 8450886-9 (Version None)
Quarter: 2012Q2

REPORT INFORMATION
  Report Type: 
  Country: None (occurrence: None)
  Receive Date: 20120620
  Receipt Date: 20120611
  Transmission Date: 20120825
  Serious: Yes (Death, Life-Threatening, Hospitalization)
  Sender: FDA-Public Use
  Company Number: DE-JNJFOC-20110200759

PATIENT
  Sex: Female
  Weight: 78 kg

DRUGS (27)
  1. INFLIXIMAB [Suspect]
     Indication: RHEUMATOID ARTHRITIS
     Route: 042
     Dates: start: 20110101, end: 20110801
  2. INFLIXIMAB [Suspect]
     Route: 042
     Dates: start: 20100801, end: 20100801
  3. PREDNISOLONE [Suspect]
  4. KINERET [Suspect]
     Indication: RHEUMATOID ARTHRITIS
     Dates: start: 20111118
  5. ENALAPRIL MALEATE AND HYDROCHLOROTHIAZIDE [Concomitant]
  6. PASPERTIN [Concomitant]
  7. LEVOTHYROXINE SODIUM [Concomitant]
  8. ESIDRIX [Concomitant]
  9. HYDROCHLOROTHIAZIDE [Concomitant]
  10. ALDACTONE [Concomitant]
  11. CYCLOSPORINE [Suspect]
     Indication: PRODUCT USED FOR UNKNOWN INDICATION
  12. CALCIUM [Concomitant]
  13. INFLIXIMAB [Suspect]
     Route: 042
     Dates: start: 20100901
  14. ACTEMRA [Concomitant]
     Indication: RHEUMATOID ARTHRITIS
     Dates: start: 20100501, end: 20100801
  15. VITAMIN D [Concomitant]
  16. METHOTREXATE [Suspect]
     Dates: start: 20071101
  17. PROCHLORPERAZINE [Concomitant]
  18. METHOTREXATE [Suspect]
     Indication: RHEUMATOID ARTHRITIS
     Dates: end: 20110101
  19. METHOTREXATE [Suspect]
  20. PREDNISOLONE [Suspect]
     Indication: PRODUCT USED FOR UNKNOWN INDICATION
  21. HYDROXYCHLOROQUINE SULFATE [Concomitant]
     Indication: RHEUMATOID ARTHRITIS
     Dates: start: 20100801, end: 20100901
  22. ALENDRONATE SODIUM [Concomitant]
  23. ERGOCALCIFEROL [Concomitant]
  24. ENOXAPARIN SODIUM [Concomitant]
  25. PREDNISONE TAB [Concomitant]
  26. PANTOPRAZOLE [Concomitant]
  27. PREDNISONE TAB [Concomitant]

REACTIONS (14)
  - IMPAIRED HEALING [None]
  - ROTATOR CUFF SYNDROME [None]
  - WOUND DEHISCENCE [None]
  - GASTROINTESTINAL STOMA NECROSIS [None]
  - PNEUMONIA CHLAMYDIAL [None]
  - PULMONARY EMBOLISM [None]
  - SKIN INJURY [None]
  - CIRCULATORY COLLAPSE [None]
  - DIVERTICULAR PERFORATION [None]
  - DIVERTICULITIS [None]
  - HYPOTENSION [None]
  - ESCHERICHIA SEPSIS [None]
  - RENAL IMPAIRMENT [None]
  - CEREBRAL ISCHAEMIA [None]
